FAERS Safety Report 17569809 (Version 1)
Quarter: 2020Q1

REPORT INFORMATION
  Report Type: Spontaneous
  Country: US (occurrence: US)
  Receive Date: 20200323
  Receipt Date: 20200323
  Transmission Date: 20200409
  Serious: Yes (Hospitalization)
  Sender: FDA-Public Use
  Company Number: US-EMCURE PHARMACEUTICALS LTD-2020-EPL-000310

PATIENT
  Age: 60 Year
  Sex: Female

DRUGS (8)
  1. TACROLIMUS. [Interacting]
     Active Substance: TACROLIMUS
     Dosage: 2 MILLIGRAM, BID
  2. FLUCONAZOLE. [Interacting]
     Active Substance: FLUCONAZOLE
     Indication: VULVOVAGINAL CANDIDIASIS
     Dosage: 200 MILLIGRAM, DAILY
  3. TACROLIMUS. [Suspect]
     Active Substance: TACROLIMUS
     Indication: POLYMYOSITIS
     Dosage: 6 MILLIGRAM, BID
  4. AZATHIOPRINE. [Concomitant]
     Active Substance: AZATHIOPRINE
     Dosage: 200 MILLIGRAM, DAILY
  5. PREDNISONE. [Suspect]
     Active Substance: PREDNISONE
     Indication: POLYMYOSITIS
     Dosage: 20 MILLIGRAM, DAILY
  6. METFORMIN [Concomitant]
     Active Substance: METFORMIN HYDROCHLORIDE
     Indication: TYPE 2 DIABETES MELLITUS
     Dosage: UNK
  7. PREDNISONE. [Suspect]
     Active Substance: PREDNISONE
     Dosage: 7.5 MILLIGRAM, DAILY
  8. FLUCONAZOLE. [Interacting]
     Active Substance: FLUCONAZOLE
     Indication: ORAL CANDIDIASIS

REACTIONS (5)
  - Drug interaction [Unknown]
  - Metabolic acidosis [Unknown]
  - Diabetic ketoacidosis [Unknown]
  - Toxicity to various agents [Unknown]
  - Off label use [Unknown]
